FAERS Safety Report 4956814-2 (Version None)
Quarter: 2006Q1

REPORT INFORMATION
  Report Type: 
  Country: None (occurrence: None)
  Receive Date: 20060323
  Receipt Date: 20060309
  Transmission Date: 20060701
  Serious: Yes (Death)
  Sender: FDA-Public Use
  Company Number: 2006P1000159

PATIENT
  Sex: Female

DRUGS (5)
  1. NICARDIPINE HYDROCHLORIDE [Suspect]
     Indication: PRE-ECLAMPSIA
     Dosage: IV
     Route: 042
     Dates: start: 20030327, end: 20030430
  2. METHYLDOPA [Concomitant]
  3. METOPROLOL SUCCINATE [Concomitant]
  4. MAGNESIUM SULFATE [Concomitant]
  5. LABETALOL HCL [Concomitant]

REACTIONS (2)
  - DRUG EXPOSURE DURING PREGNANCY [None]
  - INTRA-UTERINE DEATH [None]
